FAERS Safety Report 16523027 (Version 3)
Quarter: 2019Q4

REPORT INFORMATION
  Report Type: Spontaneous
  Country: US (occurrence: US)
  Receive Date: 20190702
  Receipt Date: 20191122
  Transmission Date: 20200122
  Serious: Yes (Death, Hospitalization)
  Sender: FDA-Public Use
  Company Number: US-ARRAY-2019-05849

PATIENT

DRUGS (13)
  1. IBUPROFEN. [Concomitant]
     Active Substance: IBUPROFEN
     Indication: PRODUCT USED FOR UNKNOWN INDICATION
  2. MEKTOVI [Suspect]
     Active Substance: BINIMETINIB
     Dosage: 45 MG, BID
     Route: 048
     Dates: end: 20191119
  3. NORVASC [Concomitant]
     Active Substance: AMLODIPINE BESYLATE
     Indication: PRODUCT USED FOR UNKNOWN INDICATION
  4. METFORMIN [Concomitant]
     Active Substance: METFORMIN HYDROCHLORIDE
     Indication: PRODUCT USED FOR UNKNOWN INDICATION
  5. LISINOPRIL. [Concomitant]
     Active Substance: LISINOPRIL
     Indication: PRODUCT USED FOR UNKNOWN INDICATION
  6. LIPITOR [Concomitant]
     Active Substance: ATORVASTATIN CALCIUM
     Indication: PRODUCT USED FOR UNKNOWN INDICATION
  7. COREG [Concomitant]
     Active Substance: CARVEDILOL
     Indication: PRODUCT USED FOR UNKNOWN INDICATION
  8. MEKTOVI [Suspect]
     Active Substance: BINIMETINIB
     Indication: MALIGNANT MELANOMA
     Dosage: 45 MG, BID
     Route: 048
     Dates: end: 20190622
  9. BRAFTOVI [Suspect]
     Active Substance: ENCORAFENIB
     Indication: MALIGNANT MELANOMA
     Dosage: 450 MG, QD
     Route: 048
     Dates: end: 20190622
  10. NAPROSYN [Concomitant]
     Active Substance: NAPROXEN
     Indication: PRODUCT USED FOR UNKNOWN INDICATION
  11. BRAFTOVI [Suspect]
     Active Substance: ENCORAFENIB
     Dosage: 450 MG, QD
     Route: 048
     Dates: end: 20191119
  12. ASPIRIN 81 [Concomitant]
     Active Substance: ASPIRIN
     Indication: PRODUCT USED FOR UNKNOWN INDICATION
  13. ZOFRAN [Concomitant]
     Active Substance: ONDANSETRON HYDROCHLORIDE
     Indication: PRODUCT USED FOR UNKNOWN INDICATION

REACTIONS (2)
  - Death [Fatal]
  - Bacteraemia [Unknown]

NARRATIVE: CASE EVENT DATE: 20190621
